FAERS Safety Report 4302559-1 (Version None)
Quarter: 2004Q1

REPORT INFORMATION
  Report Type: 
  Country: None (occurrence: None)
  Receive Date: 20040220
  Receipt Date: 20040127
  Transmission Date: 20041129
  Serious: Yes (Hospitalization)
  Sender: FDA-Public Use
  Company Number: MEDI-0001356

PATIENT
  Age: 59 Year
  Sex: Female
  Weight: 56.6996 kg

DRUGS (10)
  1. ETHYOL [Suspect]
     Indication: RADIOTHERAPY
  2. TAXOTERE [Concomitant]
  3. RADIATION THERAPY [Concomitant]
  4. DURAGESIC [Concomitant]
  5. PERCOCET (PARACETAMOL, OXYCODONE HYDROCHLORIDE) [Concomitant]
  6. COUMADIN (WARFARIN SODIUIM) [Concomitant]
  7. HEPARIN [Concomitant]
  8. CISPLATIN [Concomitant]
  9. CARBOPLATIN [Concomitant]
  10. CELEBREX [Concomitant]

REACTIONS (7)
  - EPISTAXIS [None]
  - HAEMATOCRIT DECREASED [None]
  - HAEMOGLOBIN DECREASED [None]
  - INTERNATIONAL NORMALISED RATIO INCREASED [None]
  - OEDEMA PERIPHERAL [None]
  - RASH ERYTHEMATOUS [None]
  - THROMBOCYTOPENIA [None]
